FAERS Safety Report 14087006 (Version 5)
Quarter: 2018Q2

REPORT INFORMATION
  Report Type: Spontaneous
  Country: US (occurrence: US)
  Receive Date: 20171013
  Receipt Date: 20180423
  Transmission Date: 20180711
  Serious: Yes (Life-Threatening, Hospitalization, Other)
  Sender: FDA-Public Use
  Company Number: US-AMGEN-USASP2017152784

PATIENT
  Age: 65 Year
  Sex: Female
  Weight: 77.98 kg

DRUGS (3)
  1. IBUPROFEN. [Suspect]
     Active Substance: IBUPROFEN
     Indication: PRODUCT USED FOR UNKNOWN INDICATION
     Dosage: UNK
     Route: 065
  2. PROCRIT [Suspect]
     Active Substance: ERYTHROPOIETIN
     Indication: ANAEMIA
     Dosage: UNK UNK, Q2WK
     Route: 065
     Dates: start: 2012
  3. IRON [Concomitant]
     Active Substance: IRON
     Indication: BLOOD IRON DECREASED
     Dosage: UNK
     Route: 048

REACTIONS (35)
  - Large intestinal ulcer haemorrhage [Unknown]
  - Jaw fracture [Not Recovered/Not Resolved]
  - Iron deficiency anaemia [Not Recovered/Not Resolved]
  - Unevaluable event [Unknown]
  - Joint dislocation [Not Recovered/Not Resolved]
  - Skin irritation [Not Recovered/Not Resolved]
  - Haemorrhage [Unknown]
  - Exercise tolerance decreased [Not Recovered/Not Resolved]
  - Fear [Unknown]
  - Limb injury [Unknown]
  - Therapeutic response shortened [Unknown]
  - Mental disorder [Unknown]
  - Malaise [Not Recovered/Not Resolved]
  - Haematoma [Unknown]
  - Vitamin D decreased [Unknown]
  - Muscle disorder [Unknown]
  - Osteitis [Not Recovered/Not Resolved]
  - Environmental exposure [Unknown]
  - Arteriovenous malformation [Unknown]
  - Memory impairment [Unknown]
  - Accident [Unknown]
  - Aphonia [Recovering/Resolving]
  - Apparent death [Unknown]
  - Deformity of orbit [Unknown]
  - Hypoxia [Unknown]
  - Ill-defined disorder [Unknown]
  - Pain in jaw [Not Recovered/Not Resolved]
  - Haemoglobin abnormal [Unknown]
  - Neuralgia [Unknown]
  - Joint injury [Unknown]
  - Road traffic accident [Unknown]
  - Impaired quality of life [Unknown]
  - Discomfort [Unknown]
  - Soft tissue disorder [Not Recovered/Not Resolved]
  - Pain [Unknown]

NARRATIVE: CASE EVENT DATE: 2012
